FAERS Safety Report 9376977 (Version 1)
Quarter: 2013Q3

REPORT INFORMATION
  Report Type: Report from Study
  Country: ES (occurrence: ES)
  Receive Date: 20130701
  Receipt Date: 20130702
  Transmission Date: 20140515
  Serious: Yes (Hospitalization)
  Sender: FDA-Public Use
  Company Number: ES-ROCHE-1241716

PATIENT
  Age: 64 Year
  Sex: Female
  Weight: 43 kg

DRUGS (11)
  1. BEVACIZUMAB [Suspect]
     Indication: COLORECTAL CANCER
     Dosage: LAST DOSE RECIEVED 250 MG/UNIT AT CYCLE 6 ON 14/MAY/2013 PRIOR TO SAE
     Route: 042
     Dates: start: 20130130
  2. IRINOTECAN [Suspect]
     Indication: COLORECTAL CANCER
     Dosage: LAST DOSE 130 MG/UNIT RECCIEVED ON 14/MAY/2013 PRIOR TO SAE.
     Route: 042
     Dates: start: 20130130
  3. OXALIPLATIN [Suspect]
     Indication: COLORECTAL CANCER
     Dosage: LAST DOSE 98 MG/UNIT RECCIEVED ON 14/MAY/2013 PRIOR TO SAE.
     Route: 042
     Dates: start: 20130130
  4. 5-FLUOROURACIL [Suspect]
     Indication: COLORECTAL CANCER
     Dosage: LAST DOSE 2415MG/UNIT RECCIEVED ON 14/MAY/2013 PRIOR TO SAE.
     Route: 042
     Dates: start: 20130130
  5. LEVOFOLINIC ACID [Suspect]
     Indication: COLORECTAL CANCER
     Dosage: LAST DOSE 320 MG/UNIT RECCIEVED ON 14/MAY/2013 PRIOR TO SAE.
     Route: 042
     Dates: start: 20130130
  6. LORAZEPAM [Concomitant]
     Indication: INSOMNIA
     Route: 048
     Dates: start: 20130117
  7. ONDANSETRON [Concomitant]
     Indication: NAUSEA
     Route: 048
     Dates: start: 20130312
  8. DEXAMETHASONE [Concomitant]
     Indication: NAUSEA
     Route: 048
     Dates: start: 20130312
  9. EMEND [Concomitant]
     Indication: NAUSEA
     Route: 048
     Dates: start: 20130312
  10. CITALOPRAM [Concomitant]
     Indication: DEPRESSION
     Route: 065
     Dates: start: 20130117, end: 20130220
  11. CITALOPRAM [Concomitant]
     Route: 065
     Dates: start: 20130220

REACTIONS (3)
  - Stoma site haemorrhage [Not Recovered/Not Resolved]
  - Decreased appetite [Not Recovered/Not Resolved]
  - Renal failure acute [Recovered/Resolved]
